FAERS Safety Report 6641038-3 (Version None)
Quarter: 2010Q1

REPORT INFORMATION
  Report Type: 
  Country: None (occurrence: None)
  Receive Date: 20100318
  Receipt Date: 20100119
  Transmission Date: 20100710
  Serious: No
  Sender: FDA-Public Use
  Company Number: US-ASTRAZENECA-2010SE02352

PATIENT
  Age: 33 Year
  Sex: Male

DRUGS (2)
  1. ZESTRIL [Suspect]
     Route: 048
     Dates: start: 20100109
  2. HYDROCHOLORTHYZIDE [Concomitant]

REACTIONS (1)
  - VISUAL IMPAIRMENT [None]
